FAERS Safety Report 11131410 (Version 2)
Quarter: 2015Q2

REPORT INFORMATION
  Report Type: Spontaneous
  Country: US (occurrence: US)
  Receive Date: 20150522
  Receipt Date: 20150528
  Transmission Date: 20150821
  Serious: Yes (Other)
  Sender: FDA-Public Use
  Company Number: US-APOTEX-2015AP009145

PATIENT
  Age: 48 Year
  Sex: Female

DRUGS (2)
  1. VALPROIC ACID. [Suspect]
     Active Substance: VALPROIC ACID
     Indication: BIPOLAR DISORDER
     Route: 065
  2. QUETIAPINE FUMARATE. [Suspect]
     Active Substance: QUETIAPINE FUMARATE
     Indication: BIPOLAR DISORDER
     Dosage: QUICKLY TITRATED UP TO 100MG FOR 3 DAYS.
     Route: 065

REACTIONS (4)
  - Somnambulism [Recovered/Resolved]
  - Sleep-related eating disorder [Recovered/Resolved]
  - Ammonia increased [Unknown]
  - Pancreatitis chronic [Unknown]
